FAERS Safety Report 10345667 (Version 2)
Quarter: 2014Q3

REPORT INFORMATION
  Report Type: Spontaneous
  Country: US (occurrence: US)
  Receive Date: 20140728
  Receipt Date: 20140728
  Transmission Date: 20150326
  Serious: Yes (Hospitalization)
  Sender: FDA-Public Use
  Company Number: US-GLAXOSMITHKLINE-A0873876A

PATIENT
  Sex: Male

DRUGS (4)
  1. AVANDIA [Suspect]
     Active Substance: ROSIGLITAZONE MALEATE
     Indication: DIABETES MELLITUS
     Dates: start: 20030811, end: 20030822
  2. AVANDARYL [Suspect]
     Active Substance: GLIMEPIRIDE\ROSIGLITAZONE MALEATE
     Indication: DIABETES MELLITUS
     Route: 048
     Dates: start: 200308, end: 200606
  3. AVANDAMET [Suspect]
     Active Substance: METFORMIN HYDROCHLORIDE\ROSIGLITAZONE MALEATE
     Indication: DIABETES MELLITUS
     Route: 048
     Dates: start: 20020119, end: 20090115
  4. ROSIGLITAZONE MALEATE. [Suspect]
     Active Substance: ROSIGLITAZONE MALEATE
     Indication: DIABETES MELLITUS
     Route: 048
     Dates: start: 20080606

REACTIONS (5)
  - Bundle branch block right [Unknown]
  - Silent myocardial infarction [Not Recovered/Not Resolved]
  - Cardiac failure congestive [Unknown]
  - Arteriosclerosis coronary artery [Unknown]
  - Atrioventricular block second degree [Unknown]
